FAERS Safety Report 18678632 (Version 2)
Quarter: 2021Q1

REPORT INFORMATION
  Report Type: Spontaneous
  Country: GB (occurrence: GB)
  Receive Date: 20201230
  Receipt Date: 20210218
  Transmission Date: 20210419
  Serious: Yes (Other)
  Sender: FDA-Public Use
  Company Number: GB-AMGEN-GBRSP2020209816

PATIENT
  Age: 56 Year
  Sex: Male

DRUGS (2)
  1. LOMITAPIDE [Concomitant]
     Active Substance: LOMITAPIDE MESYLATE
     Dosage: 5 MILLIGRAM, ON
  2. EVOLOCUMAB [Suspect]
     Active Substance: EVOLOCUMAB
     Indication: TYPE IIA HYPERLIPIDAEMIA
     Dosage: 420 MILLIGRAM, Q2WK
     Route: 065

REACTIONS (3)
  - Coronary artery disease [Unknown]
  - Aortic valve disease [Unknown]
  - Drug ineffective [Unknown]
